FAERS Safety Report 18727860 (Version 3)
Quarter: 2021Q1

REPORT INFORMATION
  Report Type: Spontaneous
  Country: US (occurrence: US)
  Receive Date: 20210112
  Receipt Date: 20210120
  Transmission Date: 20210419
  Serious: No
  Sender: FDA-Public Use
  Company Number: US-SA-2021SA006817

PATIENT
  Age: 32 Year
  Sex: Female

DRUGS (1)
  1. LANTUS SOLOSTAR [Suspect]
     Active Substance: INSULIN GLARGINE
     Indication: TYPE 1 DIABETES MELLITUS
     Dosage: 8 IU, QD
     Dates: start: 20200827

REACTIONS (3)
  - Blood glucose increased [Unknown]
  - Device operational issue [Unknown]
  - Incorrect dose administered by device [Unknown]
